FAERS Safety Report 13177907 (Version 1)
Quarter: 2017Q1

REPORT INFORMATION
  Report Type: Spontaneous
  Country: US (occurrence: US)
  Receive Date: 20170202
  Receipt Date: 20170202
  Transmission Date: 20170428
  Serious: No
  Sender: FDA-Public Use
  Company Number: US-BAUSCH-BL-2016-005544

PATIENT
  Sex: Female

DRUGS (2)
  1. MIGRANAL [Suspect]
     Active Substance: DIHYDROERGOTAMINE MESYLATE
     Indication: PRODUCT USED FOR UNKNOWN INDICATION
     Dosage: ONE SPRAY INTO EACH NOSTRIL AND REPEAT THE SAME ONE MORE TIME AFTER 15MIN.
     Dates: start: 20160319
  2. DIHYDROERGOTAMINE MESYLATE. [Suspect]
     Active Substance: DIHYDROERGOTAMINE MESYLATE
     Indication: MIGRAINE
     Dosage: ONE SPRAY INTO EACH NOSTRIL AND REPEAT THE SAME ONE MORE TIME AFTER 15MIN
     Route: 065
     Dates: end: 201602

REACTIONS (2)
  - Epistaxis [Unknown]
  - Nasal congestion [Unknown]
